FAERS Safety Report 5249512-1 (Version None)
Quarter: 2007Q1

REPORT INFORMATION
  Report Type: 
  Country: None (occurrence: None)
  Receive Date: 20070223
  Receipt Date: 20070213
  Transmission Date: 20070707
  Serious: Yes (Life-Threatening)
  Sender: FDA-Public Use
  Company Number: GXKR2007TR01633

PATIENT
  Age: 18 Year
  Sex: Female

DRUGS (1)
  1. ISONIAZID [Suspect]
     Indication: MEDICATION ERROR
     Dosage: 40 X 100 MG (OVERDOSE), ORAL
     Route: 048

REACTIONS (6)
  - CONVULSION [None]
  - GLASGOW COMA SCALE ABNORMAL [None]
  - INTENTIONAL OVERDOSE [None]
  - LOSS OF CONSCIOUSNESS [None]
  - METABOLIC ACIDOSIS [None]
  - RHABDOMYOLYSIS [None]
